FAERS Safety Report 4590946-6 (Version None)
Quarter: 2005Q1

REPORT INFORMATION
  Report Type: 
  Country: None (occurrence: None)
  Receive Date: 20050217
  Receipt Date: 20050204
  Transmission Date: 20050727
  Serious: Yes (Other)
  Sender: FDA-Public Use
  Company Number: S05-USA-00716-01

PATIENT
  Age: 46 Year
  Sex: Female

DRUGS (2)
  1. CELEXA [Suspect]
     Indication: ANXIETY
     Dates: start: 20030415, end: 20030417
  2. BIRTH CONTROL [Concomitant]

REACTIONS (4)
  - BLOOD PRESSURE INCREASED [None]
  - DIZZINESS [None]
  - NAUSEA [None]
  - TACHYCARDIA [None]
